FAERS Safety Report 21083771 (Version 1)
Quarter: 2022Q3

REPORT INFORMATION
  Report Type: Spontaneous
  Country: US (occurrence: US)
  Receive Date: 20220714
  Receipt Date: 20220714
  Transmission Date: 20221026
  Serious: No
  Sender: FDA-Public Use
  Company Number: US-JAZZ-2022-US-012690

PATIENT
  Sex: Female

DRUGS (1)
  1. EPIDIOLEX [Suspect]
     Active Substance: CANNABIDIOL
     Indication: Petit mal epilepsy
     Dosage: 3.5 MILLILITER
     Route: 048
     Dates: start: 20201127

REACTIONS (3)
  - Increased appetite [Unknown]
  - Weight increased [Unknown]
  - Off label use [Unknown]
